FAERS Safety Report 8467880-4 (Version None)
Quarter: 2012Q2

REPORT INFORMATION
  Report Type: 
  Country: None (occurrence: None)
  Receive Date: 20120626
  Receipt Date: 20120618
  Transmission Date: 20120825
  Serious: Yes (Hospitalization, Other)
  Sender: FDA-Public Use
  Company Number: BR-ROCHE-740295

PATIENT
  Sex: Female
  Weight: 67 kg

DRUGS (15)
  1. OMEPRAZOLE [Concomitant]
  2. TRAMADOL HCL [Suspect]
     Indication: PAIN
     Route: 065
  3. LISADOR [Concomitant]
  4. NEXIUM [Concomitant]
  5. SERTRALINE HYDROCHLORIDE [Concomitant]
     Indication: DEPRESSION
  6. MABTHERA [Suspect]
     Dosage: DOSE: 500 MG/50 ML,4TH CYCLE
     Route: 042
  7. AMITRIPTYLINE HCL [Suspect]
     Indication: PRODUCT USED FOR UNKNOWN INDICATION
     Dosage: FREQUENCY: 2 TABLETS
     Route: 065
  8. ACETAMINOPHEN [Concomitant]
  9. LEVOTHYROXINE SODIUM [Concomitant]
     Indication: THYROIDECTOMY
  10. OS-CAL +D [Concomitant]
  11. MABTHERA [Suspect]
     Indication: RHEUMATOID ARTHRITIS
     Dosage: DOSE: 500 MG/50 ML
     Route: 042
     Dates: start: 20101018, end: 20101018
  12. MABTHERA [Suspect]
     Dosage: DOSE: 500 MG/50 ML, 2ND CYCLE
     Route: 042
  13. MABTHERA [Suspect]
     Dosage: DOSE: 500 MG/50 ML, 2ND CYCLE
     Route: 042
  14. MABTHERA [Suspect]
     Dosage: DOSE: 500 MG/50 ML,3RD CYCLE
     Route: 042
  15. MABTHERA [Suspect]
     Dosage: DOSE: 500 MG/50 ML,3RD CYCLE
     Route: 042

REACTIONS (12)
  - HEADACHE [None]
  - PNEUMONIA [None]
  - ABDOMINAL PAIN UPPER [None]
  - SPINAL FRACTURE [None]
  - MALAISE [None]
  - ASTHENIA [None]
  - CONSTIPATION [None]
  - WEIGHT DECREASED [None]
  - ARTHRALGIA [None]
  - DEPRESSION [None]
  - VOMITING [None]
  - DRY MOUTH [None]
